FAERS Safety Report 7266474-6 (Version None)
Quarter: 2011Q1

REPORT INFORMATION
  Report Type: 
  Country: None (occurrence: None)
  Receive Date: 20110131
  Receipt Date: 20110127
  Transmission Date: 20110831
  Serious: Yes (Other)
  Sender: FDA-Public Use
  Company Number: JP-PFIZER INC-2011017847

PATIENT
  Age: 10 Year
  Sex: Male

DRUGS (2)
  1. WARFARIN [Concomitant]
  2. ALDACTONE [Suspect]

REACTIONS (2)
  - PANCREATIC CARCINOMA [None]
  - BLOOD GASTRIN INCREASED [None]
